FAERS Safety Report 4368924-1 (Version None)
Quarter: 2004Q2

REPORT INFORMATION
  Report Type: 
  Country: None (occurrence: None)
  Receive Date: 20040525
  Receipt Date: 20040512
  Transmission Date: 20050107
  Serious: Yes (Other)
  Sender: FDA-Public Use
  Company Number: 2004032182

PATIENT

DRUGS (2)
  1. ZOLOFT [Suspect]
     Indication: ILL-DEFINED DISORDER
  2. GEODON [Suspect]
     Indication: ILL-DEFINED DISORDER

REACTIONS (2)
  - BONE MARROW DEPRESSION [None]
  - LABORATORY TEST ABNORMAL [None]
